FAERS Safety Report 24754196 (Version 1)
Quarter: 2024Q4

REPORT INFORMATION
  Report Type: Spontaneous
  Country: PL (occurrence: PL)
  Receive Date: 20241219
  Receipt Date: 20241219
  Transmission Date: 20250115
  Serious: Yes (Other)
  Sender: GILEAD
  Company Number: PL-GILEAD-2024-0696757

PATIENT
  Age: 37 Year
  Sex: Female

DRUGS (1)
  1. TRODELVY [Suspect]
     Active Substance: SACITUZUMAB GOVITECAN-HZIY
     Indication: Triple negative breast cancer
     Dosage: 10 MG/KG ON DAYS 1 AND 8 OF 21-DAY CYCLE
     Route: 042

REACTIONS (2)
  - Disease progression [Unknown]
  - Neutropenia [Recovered/Resolved]
